FAERS Safety Report 13977257 (Version 1)
Quarter: 2017Q3

REPORT INFORMATION
  Report Type: Spontaneous
  Country: US (occurrence: US)
  Receive Date: 20170915
  Receipt Date: 20170915
  Transmission Date: 20171128
  Serious: Yes (Other)
  Sender: FDA-Public Use
  Company Number: US-ROCHE-714917

PATIENT

DRUGS (1)
  1. HERCEPTIN [Suspect]
     Active Substance: TRASTUZUMAB
     Indication: PRODUCT USED FOR UNKNOWN INDICATION
     Dosage: DOSE: NOT PROVIDED.
     Route: 065

REACTIONS (6)
  - Ejection fraction decreased [Unknown]
  - Onychoclasis [Recovering/Resolving]
  - Nail disorder [Unknown]
  - Fatigue [Recovering/Resolving]
  - Skin fissures [Unknown]
  - Epistaxis [Unknown]
